FAERS Safety Report 7858986-9 (Version None)
Quarter: 2011Q4

REPORT INFORMATION
  Report Type: 
  Country: None (occurrence: None)
  Receive Date: 20111027
  Receipt Date: 20111017
  Transmission Date: 20120403
  Serious: Yes (Hospitalization, Other)
  Sender: FDA-Public Use
  Company Number: US-BAYER-2011-035149

PATIENT
  Age: 25 Year
  Sex: Female
  Weight: 74.83 kg

DRUGS (3)
  1. FISH OIL [Concomitant]
     Indication: BLOOD CHOLESTEROL INCREASED
     Dosage: UNK UNK, TID
     Dates: start: 20080901, end: 20090801
  2. YAZ [Suspect]
     Indication: CONTRACEPTION
     Dosage: UNK
     Dates: start: 20071010, end: 20090813
  3. IBUPROFEN [Concomitant]
     Dosage: UNK
     Dates: start: 20090601

REACTIONS (3)
  - INJURY [None]
  - GALLBLADDER DISORDER [None]
  - CHOLECYSTITIS CHRONIC [None]
